FAERS Safety Report 18471544 (Version 2)
Quarter: 2024Q4

REPORT INFORMATION
  Report Type: Spontaneous
  Country: US (occurrence: US)
  Receive Date: 20201105
  Receipt Date: 20241113
  Transmission Date: 20250115
  Serious: Yes (Death, Other)
  Sender: PURDUE
  Company Number: US-PURDUE PHARMA-USA-2020-0164303

PATIENT
  Age: 26 Year
  Sex: Male

DRUGS (3)
  1. OXYCONTIN [Suspect]
     Active Substance: OXYCODONE HYDROCHLORIDE
     Indication: Product used for unknown indication
     Dosage: UNK
     Route: 048
  2. FENTANYL [Suspect]
     Active Substance: FENTANYL
     Indication: Product used for unknown indication
     Dosage: UNK
     Route: 065
  3. CANNABIS SATIVA SUBSP. INDICA TOP [Suspect]
     Active Substance: CANNABIS SATIVA SUBSP. INDICA TOP
     Indication: Product used for unknown indication
     Dosage: UNK
     Route: 065

REACTIONS (5)
  - Suspected counterfeit product [Fatal]
  - Accidental overdose [Fatal]
  - Drug dependence [Unknown]
  - Loss of consciousness [Unknown]
  - Drug abuse [Unknown]

NARRATIVE: CASE EVENT DATE: 20180701
